FAERS Safety Report 5379008-8 (Version None)
Quarter: 2007Q3

REPORT INFORMATION
  Report Type: 
  Country: None (occurrence: None)
  Receive Date: 20070705
  Receipt Date: 20070702
  Transmission Date: 20080115
  Serious: Yes (Other)
  Sender: FDA-Public Use
  Company Number: DE-JNJFOC-20070700233

PATIENT
  Age: 55 Year
  Sex: Female

DRUGS (23)
  1. RISPERDAL [Suspect]
     Route: 048
  2. RISPERDAL [Suspect]
     Route: 048
  3. RISPERDAL [Suspect]
     Route: 048
  4. RISPERDAL [Suspect]
     Indication: DRUG USE FOR UNKNOWN INDICATION
     Route: 048
  5. TORSEMIDE [Interacting]
     Route: 048
  6. TORSEMIDE [Interacting]
     Indication: DRUG USE FOR UNKNOWN INDICATION
     Route: 048
  7. LEVOTHYROXINE SODIUM [Concomitant]
     Route: 048
  8. CARVEDILOL [Concomitant]
     Route: 048
  9. CARVEDILOL [Concomitant]
     Route: 048
  10. CARVEDILOL [Concomitant]
     Route: 048
  11. FUROSEMIDE [Concomitant]
     Route: 048
  12. FUROSEMIDE [Concomitant]
     Route: 048
  13. ENALAPRIL [Concomitant]
     Route: 048
  14. ENALAPRIL [Concomitant]
     Route: 048
  15. ENALAPRIL [Concomitant]
     Route: 048
  16. BERODUAL SPRAY [Concomitant]
     Route: 048
  17. DIAZEPAM [Concomitant]
     Route: 048
  18. DIAZEPAM [Concomitant]
     Route: 048
  19. TAVOR [Concomitant]
     Route: 049
  20. TAVOR [Concomitant]
     Route: 049
  21. TAVOR [Concomitant]
     Route: 049
  22. TAVOR [Concomitant]
     Route: 049
  23. HALDOL DECANOAT [Concomitant]
     Route: 030

REACTIONS (5)
  - CARDIAC FAILURE [None]
  - DRUG INTERACTION [None]
  - PNEUMONIA [None]
  - RESPIRATORY FAILURE [None]
  - THROMBOCYTOPENIA [None]
